FAERS Safety Report 6927703-9 (Version None)
Quarter: 2010Q3

REPORT INFORMATION
  Report Type: 
  Country: None (occurrence: None)
  Receive Date: 20100816
  Receipt Date: 20100816
  Transmission Date: 20110219
  Serious: No
  Sender: FDA-Public Use
  Company Number: None

PATIENT
  Age: 43 Year
  Sex: Female
  Weight: 52 kg

DRUGS (3)
  1. PACLITAXEL [Suspect]
     Indication: NON-SMALL CELL LUNG CANCER STAGE III
     Dosage: 76MG IN 250 NORMAL SALINE AT 10ML/HR OTHER IV
     Route: 042
     Dates: start: 20100527, end: 20100527
  2. PACLITAXEL [Suspect]
  3. PACLITAXEL [Suspect]

REACTIONS (4)
  - ANXIETY [None]
  - FLUSHING [None]
  - HYPOTENSION [None]
  - WHEEZING [None]
